FAERS Safety Report 6458482-X (Version None)
Quarter: 2009Q4

REPORT INFORMATION
  Report Type: 
  Country: None (occurrence: None)
  Receive Date: 20091126
  Receipt Date: 20091119
  Transmission Date: 20100525
  Serious: Yes (Hospitalization)
  Sender: FDA-Public Use
  Company Number: US-BIOGENIDEC-2009BI038019

PATIENT
  Age: 37 Year
  Sex: Male
  Weight: 95 kg

DRUGS (1)
  1. TYSABRI [Suspect]
     Indication: MULTIPLE SCLEROSIS
     Route: 042
     Dates: start: 20091016

REACTIONS (5)
  - DYSPNOEA [None]
  - HYPOTENSION [None]
  - LOSS OF CONSCIOUSNESS [None]
  - RESPIRATORY ARREST [None]
  - URINARY INCONTINENCE [None]
